FAERS Safety Report 21119391 (Version 1)
Quarter: 2022Q3

REPORT INFORMATION
  Report Type: Spontaneous
  Country: JP (occurrence: JP)
  Receive Date: 20220722
  Receipt Date: 20220722
  Transmission Date: 20221027
  Serious: Yes (Hospitalization, Other)
  Sender: FDA-Public Use
  Company Number: JP-Accord-270082

PATIENT
  Age: 75 Year
  Sex: Male

DRUGS (2)
  1. CLOPIDOGREL [Suspect]
     Active Substance: CLOPIDOGREL BISULFATE
     Indication: Optic ischaemic neuropathy
  2. PEMAFIBRATE [Suspect]
     Active Substance: PEMAFIBRATE
     Indication: Dyslipidaemia

REACTIONS (2)
  - Drug-induced liver injury [Recovered/Resolved]
  - Vanishing bile duct syndrome [Recovered/Resolved]
